FAERS Safety Report 9684302 (Version 2)
Quarter: 2014Q1

REPORT INFORMATION
  Report Type: Report from Study
  Country: TH (occurrence: TH)
  Receive Date: 20131112
  Receipt Date: 20140221
  Transmission Date: 20141002
  Serious: Yes (Other)
  Sender: FDA-Public Use
  Company Number: TH-ROCHE-1302037

PATIENT
  Sex: 0

DRUGS (1)
  1. PEGASYS [Suspect]
     Indication: CHRONIC HEPATITIS B
     Route: 065

REACTIONS (3)
  - Pancytopenia [Unknown]
  - Thrombocytopenia [Unknown]
  - Discomfort [Unknown]
